FAERS Safety Report 10616960 (Version 1)
Quarter: 2014Q4

REPORT INFORMATION
  Report Type: Spontaneous
  Country: US (occurrence: None)
  Receive Date: 20141121
  Receipt Date: 20141121
  Transmission Date: 20150529
  Serious: Yes (Hospitalization, Other)
  Sender: FDA-Public Use
  Company Number: 20140626

PATIENT
  Age: 36 Year
  Sex: Female

DRUGS (4)
  1. INJECTAFER [Suspect]
     Active Substance: FERRIC CARBOXYMALTOSE
     Indication: PRODUCT USED FOR UNKNOWN INDICATION
     Dosage: 750 MG IN 100 ML NS IN 15 MIN. INTRAVENOUS
     Route: 042
     Dates: start: 20140827, end: 20140827
  2. FERROUS SULFATE [Concomitant]
     Active Substance: FERROUS SULFATE\FERROUS SULFATE, DRIED
  3. SYNTHROID [Concomitant]
     Active Substance: LEVOTHYROXINE SODIUM
  4. FOLIC ACID. [Concomitant]
     Active Substance: FOLIC ACID

REACTIONS (6)
  - Pruritus [None]
  - Dyspnoea [None]
  - Urticaria [None]
  - Erythema [None]
  - Blood pressure increased [None]
  - Blood pressure decreased [None]

NARRATIVE: CASE EVENT DATE: 20140827
